FAERS Safety Report 15430501 (Version 1)
Quarter: 2018Q3

REPORT INFORMATION
  Report Type: Spontaneous
  Country: US (occurrence: US)
  Receive Date: 20180926
  Receipt Date: 20180926
  Transmission Date: 20181010
  Serious: No
  Sender: FDA-Public Use
  Company Number: US-TEVA-2018-US-956642

PATIENT
  Age: 76 Year
  Sex: Male

DRUGS (1)
  1. ENOXAPARIN [Suspect]
     Active Substance: ENOXAPARIN
     Indication: THROMBOSIS
     Dosage: DOSE STRENGTH:  100 MG/1 ML
     Route: 065
     Dates: start: 201808

REACTIONS (1)
  - Injection site vesicles [Unknown]

NARRATIVE: CASE EVENT DATE: 201808
